FAERS Safety Report 16932148 (Version 4)
Quarter: 2019Q4

REPORT INFORMATION
  Report Type: Report from Study
  Country: CZ (occurrence: CZ)
  Receive Date: 20191017
  Receipt Date: 20191231
  Transmission Date: 20200122
  Serious: Yes (Hospitalization, Other)
  Sender: FDA-Public Use
  Company Number: PHHO2019CZ009630

PATIENT
  Age: 54 Year
  Sex: Female
  Weight: 83.7 kg

DRUGS (32)
  1. ISCALIMAB [Suspect]
     Active Substance: ISCALIMAB
     Indication: RENAL TRANSPLANT
     Dosage: 4 ML, Q2W
     Route: 058
     Dates: start: 20190225, end: 20190926
  2. MYCOPHENOLATE MOFETIL. [Suspect]
     Active Substance: MYCOPHENOLATE MOFETIL
     Dosage: 500 MG, BID
     Route: 048
     Dates: start: 20191004, end: 20191024
  3. PREDNISONE. [Suspect]
     Active Substance: PREDNISONE
     Indication: RENAL TRANSPLANT
     Dosage: UNK
     Route: 065
     Dates: start: 20190528
  4. COLECALCIFEROLUM [Concomitant]
     Dosage: UNK
     Route: 065
     Dates: start: 20190701
  5. FERRUM [Concomitant]
     Active Substance: FERROUS FUMARATE
     Indication: ANAEMIA
  6. LANSOPRAZOLE. [Concomitant]
     Active Substance: LANSOPRAZOLE
     Indication: PROPHYLAXIS AGAINST GASTROINTESTINAL ULCER
     Dosage: UNK
     Route: 065
     Dates: start: 20190227
  7. METAMIZOLUM [Concomitant]
     Route: 065
     Dates: start: 20190907, end: 20190912
  8. CALCIUM [Concomitant]
     Active Substance: CALCIUM
     Route: 065
     Dates: start: 20190813, end: 20190925
  9. CALCITRIOL. [Concomitant]
     Active Substance: CALCITRIOL
     Route: 065
     Dates: start: 20190702, end: 20190925
  10. IBUPROFENUM [Concomitant]
     Active Substance: IBUPROFEN
     Route: 065
     Dates: start: 20190912, end: 20190916
  11. MYCOPHENOLATE MOFETIL. [Suspect]
     Active Substance: MYCOPHENOLATE MOFETIL
     Dosage: 750 MG, QD
     Route: 048
     Dates: start: 20190927, end: 20191003
  12. COMPARATOR ANTITHYMOCYTE IMMUNOGLOBULIN [Suspect]
     Active Substance: THYMOCYTE IMMUNE GLOBULIN NOS
     Indication: PROPHYLAXIS
  13. FERRUM [Concomitant]
     Active Substance: FERROUS FUMARATE
     Indication: ANAEMIA
     Dosage: UNK
     Route: 065
     Dates: start: 20190812, end: 20190925
  14. AMLODIPIN [Concomitant]
     Active Substance: AMLODIPINE BESYLATE
     Indication: SECONDARY HYPERTENSION
     Dosage: UNK
     Route: 065
     Dates: start: 20190409, end: 20190905
  15. AMLODIPIN [Concomitant]
     Active Substance: AMLODIPINE BESYLATE
     Indication: OEDEMA PERIPHERAL
     Dosage: UNK
     Route: 065
     Dates: start: 20190906
  16. METOPROLOL. [Concomitant]
     Active Substance: METOPROLOL
     Indication: SECONDARY HYPERTENSION
     Dosage: UNK
     Route: 065
     Dates: start: 20190305
  17. METAMIZOLUM [Concomitant]
     Indication: BACK PAIN
     Dosage: UNK
     Route: 065
     Dates: start: 20190907, end: 20190912
  18. VALGANCICLOVIRUM [Concomitant]
     Indication: CYTOMEGALOVIRUS VIRAEMIA
     Dosage: UNK
     Route: 065
     Dates: start: 20190927
  19. IBUPROFENUM [Concomitant]
     Active Substance: IBUPROFEN
     Indication: BACK PAIN
     Dosage: UNK
     Route: 065
     Dates: start: 20190905, end: 20190912
  20. MEPHENOXALONUM [Concomitant]
     Indication: BACK PAIN
     Dosage: UNK
     Route: 065
     Dates: start: 20190907, end: 20190912
  21. MYCOPHENOLATE MOFETIL. [Suspect]
     Active Substance: MYCOPHENOLATE MOFETIL
     Indication: RENAL TRANSPLANT
     Dosage: 750 MG, Q12H
     Route: 048
     Dates: start: 20190225, end: 20190925
  22. VALSARTANUM [Concomitant]
     Indication: SECONDARY HYPERTENSION
     Dosage: UNK
     Route: 065
     Dates: start: 20190730
  23. VALGANCICLOVIRUM [Concomitant]
     Indication: CYTOMEGALOVIRUS VIRAEMIA
     Route: 065
     Dates: start: 20190927
  24. MESOCAIN [Concomitant]
     Indication: BACK PAIN
     Dosage: UNK
     Route: 065
     Dates: start: 20190907, end: 20190907
  25. TOLPERISONI HYDROCHLORIDUM [Concomitant]
     Indication: BACK PAIN
     Route: 065
     Dates: start: 20190904, end: 20190904
  26. LEVOTHYROXINUM [Concomitant]
     Dosage: UNK
     Route: 065
     Dates: start: 20190717, end: 20190925
  27. MAGNESIUM [Concomitant]
     Active Substance: MAGNESIUM
     Dosage: UNK
     Route: 065
     Dates: start: 20190701, end: 20190925
  28. ALLOPURINOL. [Concomitant]
     Active Substance: ALLOPURINOL
     Indication: HYPERURICAEMIA
     Dosage: UNK
     Route: 065
     Dates: start: 20190730, end: 20190925
  29. COMPARATOR ANTITHYMOCYTE IMMUNOGLOBULIN [Suspect]
     Active Substance: THYMOCYTE IMMUNE GLOBULIN NOS
     Indication: RENAL TRANSPLANT
     Dosage: 125 MG, QD
     Route: 042
     Dates: start: 20190225, end: 20190226
  30. IBUPROFENUM [Concomitant]
     Active Substance: IBUPROFEN
     Dosage: UNK
     Route: 065
     Dates: start: 20190912, end: 20190916
  31. IBUPROFENUM [Concomitant]
     Active Substance: IBUPROFEN
     Route: 065
     Dates: start: 20190905, end: 20190912
  32. MEPHENOXALONUM [Concomitant]
     Route: 065
     Dates: start: 20190907, end: 20190912

REACTIONS (1)
  - BK virus infection [Not Recovered/Not Resolved]

NARRATIVE: CASE EVENT DATE: 20190925
